FAERS Safety Report 15481516 (Version 1)
Quarter: 2018Q4

REPORT INFORMATION
  Report Type: Spontaneous
  Country: GB (occurrence: GB)
  Receive Date: 20181010
  Receipt Date: 20181010
  Transmission Date: 20190205
  Serious: Yes (Other)
  Sender: FDA-Public Use
  Company Number: GB-BIO PRODUCTS LABORATORY LTD-2055881

PATIENT
  Age: 37 Year
  Sex: Female

DRUGS (8)
  1. AZATHIOPRINE. [Suspect]
     Active Substance: AZATHIOPRINE
  2. GENERIC IVIG [Suspect]
     Active Substance: HUMAN IMMUNOGLOBULIN G
     Indication: CHRONIC INFLAMMATORY DEMYELINATING POLYRADICULONEUROPATHY
     Route: 042
  3. RITUXIMAB. [Suspect]
     Active Substance: RITUXIMAB
  4. INTERFERON BETA NOS [Suspect]
     Active Substance: INTERFERON BETA
  5. CICLOSPORIN [Suspect]
     Active Substance: CYCLOSPORINE
  6. MYCOPHENOLIC ACID. [Suspect]
     Active Substance: MYCOPHENOLIC ACID
  7. ALEMTUZUMAB [Suspect]
     Active Substance: ALEMTUZUMAB
  8. TACROLIMUS. [Suspect]
     Active Substance: TACROLIMUS

REACTIONS (4)
  - Therapeutic response decreased [Unknown]
  - Product use in unapproved indication [Unknown]
  - Therapy non-responder [Unknown]
  - Drug effect incomplete [Unknown]
